FAERS Safety Report 23554507 (Version 1)
Quarter: 2024Q1

REPORT INFORMATION
  Report Type: Spontaneous
  Country: US (occurrence: US)
  Receive Date: 20240222
  Receipt Date: 20240222
  Transmission Date: 20240410
  Serious: Yes (Other)
  Sender: FDA-Public Use
  Company Number: US-NOVOPROD-1179311

PATIENT
  Age: 25 Year

DRUGS (1)
  1. SAXENDA [Suspect]
     Active Substance: LIRAGLUTIDE
     Indication: Polycystic ovarian syndrome
     Dosage: UNK
     Route: 058
     Dates: start: 202307

REACTIONS (3)
  - Systemic lupus erythematosus [Unknown]
  - Fibromyalgia [Unknown]
  - Off label use [Unknown]
